FAERS Safety Report 8618299-4 (Version None)
Quarter: 2012Q3

REPORT INFORMATION
  Report Type: 
  Country: None (occurrence: None)
  Receive Date: 20120824
  Receipt Date: 20120814
  Transmission Date: 20120928
  Serious: Yes (Hospitalization, Other)
  Sender: FDA-Public Use
  Company Number: US-BIOGENIDEC-2012BI031387

PATIENT
  Sex: Female

DRUGS (3)
  1. AVONEX [Suspect]
     Indication: MULTIPLE SCLEROSIS
     Route: 030
     Dates: start: 20101214
  2. PAIN MEDS (NOS) [Concomitant]
     Indication: OSTEONECROSIS
  3. PREDNISONE TAB [Concomitant]
     Indication: ASTHMA

REACTIONS (10)
  - UTERINE CYST [None]
  - POST PROCEDURAL HAEMATOMA [None]
  - CERVIX NEOPLASM [None]
  - PROCEDURAL PAIN [None]
  - OSTEONECROSIS [None]
  - UTERINE NEOPLASM [None]
  - TOOTH DISORDER [None]
  - POST PROCEDURAL COMPLICATION [None]
  - CERVICAL CYST [None]
  - ABDOMINAL PAIN [None]
